FAERS Safety Report 9765178 (Version 1)
Quarter: 2013Q4

REPORT INFORMATION
  Report Type: Spontaneous
  Country: US (occurrence: US)
  Receive Date: 20131217
  Receipt Date: 20131217
  Transmission Date: 20140711
  Serious: No
  Sender: FDA-Public Use
  Company Number: US-GLAXOSMITHKLINE-A1000908A

PATIENT
  Age: 78 Year
  Sex: Male
  Weight: 67.3 kg

DRUGS (5)
  1. VOTRIENT [Suspect]
     Indication: RENAL CELL CARCINOMA
     Dosage: 800MG PER DAY
     Route: 048
     Dates: start: 20121003
  2. ASA [Concomitant]
     Route: 048
  3. LISINOPRIL [Concomitant]
     Route: 048
  4. DOXAZOSIN [Concomitant]
     Route: 048
  5. MULTIVITAMIN [Concomitant]

REACTIONS (3)
  - Weight decreased [Recovering/Resolving]
  - Faeces soft [Unknown]
  - Alanine aminotransferase increased [Unknown]
